FAERS Safety Report 26143463 (Version 2)
Quarter: 2025Q4

REPORT INFORMATION
  Report Type: Spontaneous
  Country: EU (occurrence: EU)
  Receive Date: 20251211
  Receipt Date: 20251218
  Transmission Date: 20260118
  Serious: Yes (Other)
  Sender: ROCHE
  Company Number: EU-ROCHE-10000454883

PATIENT
  Sex: Male

DRUGS (4)
  1. ATEZOLIZUMAB [Suspect]
     Active Substance: ATEZOLIZUMAB
     Indication: Hepatocellular carcinoma
  2. ATEZOLIZUMAB [Suspect]
     Active Substance: ATEZOLIZUMAB
  3. BEVACIZUMAB [Suspect]
     Active Substance: BEVACIZUMAB
     Indication: Hepatocellular carcinoma
  4. BEVACIZUMAB [Suspect]
     Active Substance: BEVACIZUMAB

REACTIONS (1)
  - Neutropenia [Unknown]
